FAERS Safety Report 5279507-3 (Version None)
Quarter: 2007Q1

REPORT INFORMATION
  Report Type: 
  Country: None (occurrence: None)
  Receive Date: 20070328
  Receipt Date: 20070316
  Transmission Date: 20070707
  Serious: Yes (Hospitalization)
  Sender: FDA-Public Use
  Company Number: JP-PFIZER INC-2006097451

PATIENT
  Sex: Female
  Weight: 40.5 kg

DRUGS (6)
  1. IRINOTECAN HCL [Suspect]
     Indication: OVARIAN CANCER
     Dosage: DAILY DOSE:100MG/M2-FREQ:CYCLIC
     Route: 042
     Dates: start: 20060509, end: 20060509
  2. IRINOTECAN HCL [Suspect]
     Dosage: DAILY DOSE:100MG/M2-FREQ:CYCLIC
     Route: 042
     Dates: start: 20060512, end: 20060526
  3. IRINOTECAN HCL [Suspect]
     Dosage: DAILY DOSE:100MG/M2-FREQ:CYCLIC
     Route: 042
     Dates: start: 20060609, end: 20060623
  4. IRINOTECAN HCL [Suspect]
     Dosage: DAILY DOSE:100MG/M2-FREQ:CYCLIC
     Route: 042
     Dates: start: 20060711, end: 20060725
  5. NORVASC [Concomitant]
     Indication: HYPERTENSION
     Dosage: DAILY DOSE:10MG-FREQ:UNKNOWN
     Route: 048
  6. PURSENNID [Concomitant]
     Route: 048

REACTIONS (4)
  - DIARRHOEA [None]
  - HYPOKALAEMIA [None]
  - LOSS OF CONSCIOUSNESS [None]
  - VOMITING [None]
